FAERS Safety Report 18234781 (Version 1)
Quarter: 2020Q3

REPORT INFORMATION
  Report Type: Report from Study
  Country: None (occurrence: US)
  Receive Date: 20200905
  Receipt Date: 20200905
  Transmission Date: 20201103
  Serious: Yes (Hospitalization)
  Sender: FDA-Public Use
  Company Number: US-ABBVIE-20K-163-3505803-00

PATIENT
  Age: 73 Year
  Sex: Female
  Weight: 41.77 kg

DRUGS (2)
  1. HUMIRA [Suspect]
     Active Substance: ADALIMUMAB
     Indication: OSTEOARTHRITIS
     Route: 058
     Dates: start: 20200728
  2. HUMIRA [Suspect]
     Active Substance: ADALIMUMAB
     Indication: RHEUMATOID ARTHRITIS
     Route: 058
     Dates: start: 20200605, end: 2020

REACTIONS (2)
  - Large intestinal haemorrhage [Recovering/Resolving]
  - Cellulitis [Recovered/Resolved]

NARRATIVE: CASE EVENT DATE: 20200620
